FAERS Safety Report 8394693-4 (Version None)
Quarter: 2012Q2

REPORT INFORMATION
  Report Type: 
  Country: None (occurrence: None)
  Receive Date: 20120530
  Receipt Date: 20120524
  Transmission Date: 20120825
  Serious: Yes (Other)
  Sender: FDA-Public Use
  Company Number: US-PFIZER INC-2012126313

PATIENT
  Sex: Female
  Weight: 59 kg

DRUGS (2)
  1. PRISTIQ [Suspect]
     Indication: DEPRESSION
     Dosage: 50 MG, 1X/DAY
     Route: 048
     Dates: start: 20120516, end: 20120517
  2. PRISTIQ [Suspect]
     Indication: ANXIETY

REACTIONS (6)
  - HEADACHE [None]
  - FEELING ABNORMAL [None]
  - SUICIDAL IDEATION [None]
  - HYPOTENSION [None]
  - TREMOR [None]
  - DYSSTASIA [None]
